FAERS Safety Report 12403197 (Version 1)
Quarter: 2016Q2

REPORT INFORMATION
  Report Type: Report from Study
  Country: US (occurrence: US)
  Receive Date: 20160525
  Receipt Date: 20160525
  Transmission Date: 20160815
  Serious: Yes (Other)
  Sender: FDA-Public Use
  Company Number: US-ACTELION-A-NJ2015-124325

PATIENT
  Age: 85 Year
  Sex: Female

DRUGS (4)
  1. MACITENTAN [Suspect]
     Active Substance: MACITENTAN
     Indication: PULMONARY ARTERIAL HYPERTENSION
     Dosage: 10 MG, QD
     Route: 048
     Dates: start: 20140224
  2. AMLODIPINE [Concomitant]
     Active Substance: AMLODIPINE BESYLATE
  3. REVATIO [Concomitant]
     Active Substance: SILDENAFIL CITRATE
  4. LATANOPROST. [Suspect]
     Active Substance: LATANOPROST
     Indication: PRODUCT USED FOR UNKNOWN INDICATION
     Route: 065

REACTIONS (18)
  - Back injury [Unknown]
  - Chest pain [Unknown]
  - Viral infection [Unknown]
  - Neck pain [Unknown]
  - Chest discomfort [Unknown]
  - Blindness [Unknown]
  - Joint injury [Unknown]
  - Paraesthesia [Unknown]
  - Back pain [Unknown]
  - No therapeutic response [Unknown]
  - Cough [Unknown]
  - Deafness [Unknown]
  - Fall [Unknown]
  - Glaucoma [Unknown]
  - Rhinorrhoea [Unknown]
  - Visual impairment [Unknown]
  - Headache [Unknown]
  - Alopecia [Unknown]
